FAERS Safety Report 4631895-4 (Version None)
Quarter: 2005Q2

REPORT INFORMATION
  Report Type: 
  Country: None (occurrence: None)
  Receive Date: 20050411
  Receipt Date: 20050118
  Transmission Date: 20051028
  Serious: Yes (Other)
  Sender: FDA-Public Use
  Company Number: US-BRISTOL-MYERS SQUIBB COMPANY-12828182

PATIENT
  Age: 78 Year
  Sex: Male
  Weight: 57 kg

DRUGS (2)
  1. PRAVACHOL [Suspect]
     Indication: BLOOD CHOLESTEROL INCREASED
     Route: 048
  2. FLOMAX [Concomitant]

REACTIONS (1)
  - MYOCARDIAL INFARCTION [None]
